FAERS Safety Report 13534262 (Version 1)
Quarter: 2017Q2

REPORT INFORMATION
  Report Type: Spontaneous
  Country: US (occurrence: US)
  Receive Date: 20170510
  Receipt Date: 20170510
  Transmission Date: 20170830
  Serious: Yes (Life-Threatening, Hospitalization)
  Sender: FDA-Public Use
  Company Number: None

PATIENT
  Age: 37 Year
  Sex: Female

DRUGS (1)
  1. NUVARING [Suspect]
     Active Substance: ETHINYL ESTRADIOL\ETONOGESTREL
     Indication: CONTRACEPTION
     Dosage: 0.15/0.12 MG Q3WEEKS VAGINALLY
     Route: 067
     Dates: start: 201703, end: 201704

REACTIONS (2)
  - Chest pain [None]
  - Pulmonary embolism [None]

NARRATIVE: CASE EVENT DATE: 20170427
